FAERS Safety Report 8620354 (Version 2)
Quarter: 2012Q4

REPORT INFORMATION
  Report Type: Report from Study
  Country: US (occurrence: US)
  Receive Date: 20120618
  Receipt Date: 20121102
  Transmission Date: 20130627
  Serious: Yes (Other)
  Sender: FDA-Public Use
  Company Number: US-ABBOTT-12P-163-0944110-00

PATIENT
  Age: 66 None
  Sex: Male
  Weight: 129.39 kg

DRUGS (2)
  1. HUMIRA 40 MG/0.8 ML PEN [Suspect]
     Indication: CROHN^S DISEASE
     Dates: start: 20090311, end: 20110526
  2. IMURAN [Concomitant]
     Indication: CROHN^S DISEASE

REACTIONS (19)
  - Blood urine present [Unknown]
  - Metastatic carcinoma of the bladder [Not Recovered/Not Resolved]
  - Bladder neoplasm [Unknown]
  - Dysuria [Unknown]
  - Knee arthroplasty [Unknown]
  - Arthritis [Unknown]
  - Erythema [Unknown]
  - Arthralgia [Unknown]
  - Skin ulcer [Unknown]
  - Staphylococcal infection [Unknown]
  - Abdominal pain upper [Unknown]
  - Malaise [Recovering/Resolving]
  - Large intestinal ulcer [Unknown]
  - Arthritis [Unknown]
  - Large intestine polyp [Unknown]
  - Joint effusion [Unknown]
  - Arthritis bacterial [Unknown]
  - Haematuria [Unknown]
  - Nephrolithiasis [Unknown]
